FAERS Safety Report 5879263-1 (Version None)
Quarter: 2008Q3

REPORT INFORMATION
  Report Type: 
  Country: None (occurrence: None)
  Receive Date: 20080912
  Receipt Date: 20080618
  Transmission Date: 20090109
  Serious: No
  Sender: FDA-Public Use
  Company Number: US-BAYER-200825933NA

PATIENT
  Age: 50 Year
  Sex: Male
  Weight: 85 kg

DRUGS (7)
  1. LEVITRA [Suspect]
     Indication: DRUG USE FOR UNKNOWN INDICATION
     Route: 048
     Dates: start: 20080222
  2. HYDROXYZINE [Concomitant]
     Dosage: TOTAL DAILY DOSE: 200 MG
     Route: 048
  3. CETIRIZINE HCL [Concomitant]
     Dosage: TOTAL DAILY DOSE: 10 MG
     Route: 048
     Dates: start: 20061009
  4. FLONASE [Concomitant]
     Dosage: AS USED: 1 PUFF
     Route: 045
     Dates: start: 20061006
  5. PREVACID [Concomitant]
     Indication: GASTROOESOPHAGEAL REFLUX DISEASE
  6. LYRICA [Concomitant]
     Indication: NEURALGIA
  7. ZOLOFT [Concomitant]

REACTIONS (3)
  - PAIN [None]
  - PRURITUS [None]
  - RASH ERYTHEMATOUS [None]
